FAERS Safety Report 24417300 (Version 1)
Quarter: 2024Q4

REPORT INFORMATION
  Report Type: Spontaneous
  Country: US (occurrence: US)
  Receive Date: 20241009
  Receipt Date: 20241009
  Transmission Date: 20250115
  Serious: Yes (Death, Hospitalization, Other)
  Sender: BAYER
  Company Number: US-BAYER-2024A141725

PATIENT
  Age: 83 Year
  Sex: Male

DRUGS (3)
  1. ASPIRIN [Suspect]
     Active Substance: ASPIRIN
     Indication: Acute myocardial infarction
  2. TICAGRELOR [Suspect]
     Active Substance: TICAGRELOR
  3. HEPARIN [Suspect]
     Active Substance: HEPARIN SODIUM

REACTIONS (9)
  - Cardiac tamponade [Fatal]
  - Pericardial haemorrhage [Fatal]
  - Shock [Fatal]
  - Multiple organ dysfunction syndrome [None]
  - Hyperkalaemia [None]
  - Ischaemic hepatitis [None]
  - Renal failure [None]
  - Metabolic acidosis [None]
  - Coagulopathy [None]
